FAERS Safety Report 4541343-0 (Version None)
Quarter: 2004Q4

REPORT INFORMATION
  Report Type: 
  Country: None (occurrence: None)
  Receive Date: 20041227
  Receipt Date: 20041104
  Transmission Date: 20050328
  Serious: Yes (Hospitalization)
  Sender: FDA-Public Use
  Company Number: 210195

PATIENT
  Age: 66 Year
  Sex: Male
  Weight: 84 kg

DRUGS (6)
  1. AVASTIN [Suspect]
     Indication: COLORECTAL CANCER METASTATIC
     Dosage: 615 MG, Q3W, INTRAVENOUS
     Route: 042
     Dates: start: 20041015, end: 20041015
  2. CAPECITABINE (CAPECITABINE) [Suspect]
     Indication: COLORECTAL CANCER METASTATIC
     Dosage: 2500 MG, QD, ORAL
     Route: 048
     Dates: start: 20041015
  3. TRAMADOL HCL [Concomitant]
  4. DOMPERIDONE (DOMPERIDONE) [Concomitant]
  5. DEXAMETHASONE [Concomitant]
  6. ACETAMINOPHEN [Concomitant]

REACTIONS (9)
  - DEEP VEIN THROMBOSIS [None]
  - DISEASE PROGRESSION [None]
  - FATIGUE [None]
  - GENERAL PHYSICAL HEALTH DETERIORATION [None]
  - HOARSENESS [None]
  - INTESTINAL OBSTRUCTION [None]
  - NAUSEA [None]
  - OEDEMA PERIPHERAL [None]
  - PULMONARY EMBOLISM [None]
